FAERS Safety Report 14606915 (Version 2)
Quarter: 2019Q2

REPORT INFORMATION
  Report Type: Spontaneous
  Country: US (occurrence: US)
  Receive Date: 20180307
  Receipt Date: 20190403
  Transmission Date: 20190711
  Serious: Yes (Other)
  Sender: FDA-Public Use
  Company Number: US-ASTRAZENECA-2018SE27661

PATIENT
  Age: 50 Year
  Sex: Male
  Weight: 77.1 kg

DRUGS (28)
  1. PRILOSEC OTC [Suspect]
     Active Substance: OMEPRAZOLE MAGNESIUM
     Indication: GASTROOESOPHAGEAL REFLUX DISEASE
     Route: 048
     Dates: start: 20030101, end: 201706
  2. AZITHROMYCIN ANHYDROUS. [Concomitant]
     Active Substance: AZITHROMYCIN ANHYDROUS
  3. SEROQUEL [Concomitant]
     Active Substance: QUETIAPINE FUMARATE
  4. FLUCONAZOLE. [Concomitant]
     Active Substance: FLUCONAZOLE
  5. NEXIUM 24HR [Suspect]
     Active Substance: ESOMEPRAZOLE MAGNESIUM
     Route: 048
     Dates: start: 200301, end: 201706
  6. PRILOSEC OTC [Suspect]
     Active Substance: OMEPRAZOLE MAGNESIUM
     Indication: GASTROOESOPHAGEAL REFLUX DISEASE
     Route: 048
     Dates: start: 20030101, end: 201706
  7. ZEGERID OTC [Suspect]
     Active Substance: OMEPRAZOLE\SODIUM BICARBONATE
     Indication: GASTROOESOPHAGEAL REFLUX DISEASE
     Route: 065
     Dates: start: 20100301, end: 20140220
  8. ZEGERID OTC [Suspect]
     Active Substance: OMEPRAZOLE\SODIUM BICARBONATE
     Indication: GASTROOESOPHAGEAL REFLUX DISEASE
     Route: 065
     Dates: start: 20100301, end: 20140220
  9. ESTAZOLAM. [Concomitant]
     Active Substance: ESTAZOLAM
     Indication: INSOMNIA
  10. RISPERIDONE. [Concomitant]
     Active Substance: RISPERIDONE
     Indication: PSYCHOTIC DISORDER
  11. METHYLPREDNISOLONE. [Concomitant]
     Active Substance: METHYLPREDNISOLONE
  12. OMEPRAZOLE. [Suspect]
     Active Substance: OMEPRAZOLE
     Indication: GASTROOESOPHAGEAL REFLUX DISEASE
     Route: 065
     Dates: start: 20140617, end: 20160516
  13. PREDNISONE. [Concomitant]
     Active Substance: PREDNISONE
  14. AMOX [Concomitant]
     Active Substance: UNSPECIFIED INGREDIENT
  15. METHYLPRED [Concomitant]
     Active Substance: METHYLPREDNISOLONE
  16. DIAZEPAM. [Concomitant]
     Active Substance: DIAZEPAM
  17. NEXIUM 24HR [Suspect]
     Active Substance: ESOMEPRAZOLE MAGNESIUM
     Route: 048
     Dates: start: 20140301, end: 20160601
  18. PRILOSEC OTC [Suspect]
     Active Substance: OMEPRAZOLE MAGNESIUM
     Indication: GASTROOESOPHAGEAL REFLUX DISEASE
     Route: 048
     Dates: start: 20100228
  19. CHERATUSSIN [Concomitant]
     Active Substance: AMMONIUM CHLORIDE\DEXTROMETHORPHAN\SODIUM CITRATE
  20. ATIVAN [Concomitant]
     Active Substance: LORAZEPAM
     Indication: ANXIETY
  21. NYSTATIN. [Concomitant]
     Active Substance: NYSTATIN
  22. TRIHEXYPHENIDYL [Concomitant]
     Active Substance: TRIHEXYPHENIDYL
  23. AZITHROMYCIN ANHYDROUS. [Concomitant]
     Active Substance: AZITHROMYCIN ANHYDROUS
  24. SUCRALFATE. [Concomitant]
     Active Substance: SUCRALFATE
  25. ZOLPIDEM [Concomitant]
     Active Substance: ZOLPIDEM\ZOLPIDEM TARTRATE
  26. LORAZEPAM. [Concomitant]
     Active Substance: LORAZEPAM
  27. PRILOSEC OTC [Suspect]
     Active Substance: OMEPRAZOLE MAGNESIUM
     Indication: GASTROOESOPHAGEAL REFLUX DISEASE
     Route: 048
     Dates: start: 20100228
  28. OMEPRAZOLE. [Suspect]
     Active Substance: OMEPRAZOLE
     Indication: GASTROOESOPHAGEAL REFLUX DISEASE
     Route: 065
     Dates: start: 20140617, end: 20160516

REACTIONS (1)
  - Chronic kidney disease [Unknown]

NARRATIVE: CASE EVENT DATE: 2015
